FAERS Safety Report 5273418-5 (Version None)
Quarter: 2007Q1

REPORT INFORMATION
  Report Type: 
  Country: None (occurrence: None)
  Receive Date: 20061219
  Receipt Date: 20061009
  Transmission Date: 20070707
  Serious: Yes (Hospitalization, Other)
  Sender: FDA-Public Use
  Company Number: US-JNJFOC-20061001377

PATIENT
  Age: 47 Year
  Sex: Female
  Weight: 88.4514 kg

DRUGS (10)
  1. ORTHO EVRA [Suspect]
     Indication: HORMONE REPLACEMENT THERAPY
     Dosage: TRANSDERMAL
     Route: 062
     Dates: start: 20020618, end: 20030127
  2. FOLIC ACID [Concomitant]
  3. ELAVIL [Concomitant]
  4. NEXIUM [Concomitant]
  5. COPAXONE [Concomitant]
  6. INDERAL [Concomitant]
  7. CELEBREX [Concomitant]
  8. CARISOPRODOL [Concomitant]
  9. ELAVIL [Concomitant]
  10. METHOTREXATE [Concomitant]

REACTIONS (2)
  - DEEP VEIN THROMBOSIS [None]
  - PULMONARY EMBOLISM [None]
